FAERS Safety Report 15976189 (Version 1)
Quarter: 2019Q1

REPORT INFORMATION
  Report Type: Spontaneous
  Country: US (occurrence: US)
  Receive Date: 20190218
  Receipt Date: 20190218
  Transmission Date: 20190418
  Serious: No
  Sender: FDA-Public Use
  Company Number: US-PFIZER INC-2019064220

PATIENT
  Age: 77 Year
  Sex: Male
  Weight: 73.3 kg

DRUGS (1)
  1. GABAPENTIN. [Suspect]
     Active Substance: GABAPENTIN
     Dosage: 1500 MG, DAILY (2 CAPS IN THE MORNING AND AFTERNOON AND 3 CAPSULES AT NIGHT)

REACTIONS (1)
  - Drug ineffective [Unknown]
